FAERS Safety Report 16839057 (Version 2)
Quarter: 2019Q4

REPORT INFORMATION
  Report Type: Spontaneous
  Country: RU (occurrence: RU)
  Receive Date: 20190923
  Receipt Date: 20191113
  Transmission Date: 20200122
  Serious: Yes (Other)
  Sender: FDA-Public Use
  Company Number: RU-GLAXOSMITHKLINE-RU2019EME169566

PATIENT

DRUGS (1)
  1. DUODART [Suspect]
     Active Substance: DUTASTERIDE\TAMSULOSIN
     Indication: BENIGN PROSTATIC HYPERPLASIA
     Dosage: UNK

REACTIONS (5)
  - Myocardial infarction [Unknown]
  - Breast cancer [Unknown]
  - Breast disorder [Unknown]
  - Musculoskeletal chest pain [Unknown]
  - Precancerous skin lesion [Unknown]
